FAERS Safety Report 7289356-2 (Version None)
Quarter: 2011Q1

REPORT INFORMATION
  Report Type: 
  Country: None (occurrence: None)
  Receive Date: 20110211
  Receipt Date: 20110204
  Transmission Date: 20110831
  Serious: Yes (Death, Life-Threatening, Hospitalization, Other)
  Sender: FDA-Public Use
  Company Number: FR-PFIZER INC-2010153713

PATIENT
  Age: 75 Year
  Sex: Male
  Weight: 67 kg

DRUGS (36)
  1. ACETAMINOPHEN [Concomitant]
     Indication: PAIN PROPHYLAXIS
     Dosage: UNK
     Route: 042
     Dates: start: 20101026, end: 20101102
  2. KAYEXALATE [Concomitant]
     Indication: HYPERKALAEMIA
     Dosage: 3 G, 1X/DAY
     Route: 048
     Dates: start: 20101027, end: 20101027
  3. LEDERFOLIN [Concomitant]
     Indication: SUPPLEMENTATION THERAPY
     Dosage: UNK
     Dates: start: 20101029, end: 20101113
  4. AMIODARONE [Concomitant]
     Indication: ARRHYTHMIA
     Dosage: UNK
     Route: 042
     Dates: start: 20101025, end: 20101114
  5. HYDROCORTISONE HYDROGEN SUCCINATE [Concomitant]
     Indication: INFLAMMATION
     Dosage: UNK
     Route: 042
     Dates: start: 20101109, end: 20101114
  6. PLASMION [Concomitant]
     Indication: HYPOVOLAEMIA
     Dosage: 500 ML, 1X/DAY
     Dates: start: 20101026, end: 20101026
  7. FUROSEMIDE [Concomitant]
     Indication: OLIGURIA
     Dosage: 20 MG, 2X/DAY
     Dates: start: 20101027, end: 20101028
  8. ALBUMIN HUMAN [Concomitant]
     Indication: HYPOALBUMINAEMIA
     Dosage: UNK
     Route: 042
     Dates: start: 20101026, end: 20101109
  9. ARGATROBAN [Suspect]
     Indication: HEPARIN-INDUCED THROMBOCYTOPENIA
     Dosage: 0.12 UG/KG/MIN (0.5 ML/HR)
     Route: 042
     Dates: start: 20101105, end: 20101110
  10. VITAMIN B-12 [Concomitant]
     Indication: SUPPLEMENTATION THERAPY
     Dosage: UNK
     Route: 042
     Dates: start: 20101029, end: 20101029
  11. PLASMION [Concomitant]
     Dosage: 500 ML, 2X/DAY
     Dates: start: 20101105, end: 20101105
  12. HYPNOVEL [Concomitant]
     Indication: SEDATION
     Dosage: 2 MG, 1X/DAY
     Route: 042
     Dates: start: 20101105, end: 20101105
  13. PROPOFOL [Concomitant]
     Indication: SEDATION
     Dosage: UNK
     Route: 042
     Dates: start: 20101026, end: 20101114
  14. VANCOMYCIN [Concomitant]
     Indication: INFECTION
     Dosage: UNK
     Route: 042
     Dates: start: 20101107, end: 20101114
  15. GLUCOSE [Concomitant]
     Indication: POSITIVE CARDIAC INOTROPIC EFFECT
     Dosage: UNK
     Dates: start: 20101025, end: 20101026
  16. VITAMIN K TAB [Concomitant]
  17. CALCIUM FOLINATE [Concomitant]
     Indication: MEDICAL DIET
     Dosage: 5 MG, 1X/DAY
     Route: 042
     Dates: start: 20101107, end: 20101108
  18. ASPEGIC 325 [Concomitant]
     Indication: ANTICOAGULANT THERAPY
     Dosage: 100 MG, 1X/DAY
     Route: 048
     Dates: start: 20101031, end: 20101112
  19. INSULIN PORCINE [Concomitant]
     Indication: POSITIVE CARDIAC INOTROPIC EFFECT
     Dosage: UNK
     Dates: start: 20101025, end: 20101026
  20. PLASMION [Concomitant]
     Dosage: 500 ML, 2X/DAY
     Dates: start: 20101028, end: 20101028
  21. ACTRAPID [Concomitant]
     Indication: HYPERGLYCAEMIA
     Dosage: UNK
     Route: 042
     Dates: start: 20101025, end: 20101026
  22. NIMBEX [Concomitant]
     Indication: SEDATION
     Dosage: UNK
     Route: 042
     Dates: start: 20101031, end: 20101031
  23. REMIFENTANIL [Concomitant]
     Indication: SEDATION
     Dosage: UNK
     Route: 042
     Dates: start: 20101030, end: 20101114
  24. NORADRENALINE [Concomitant]
     Indication: VASOPLEGIA SYNDROME
     Dosage: UNK
     Route: 042
     Dates: start: 20101031, end: 20101114
  25. KETAMINE [Concomitant]
     Indication: ANALGESIC THERAPY
     Dosage: UNK
     Route: 042
     Dates: start: 20101030, end: 20101113
  26. ADRENALIN IN OIL INJ [Concomitant]
     Indication: HAEMODYNAMIC INSTABILITY
     Dosage: UNK
     Dates: start: 20101026, end: 20101107
  27. PLASMION [Concomitant]
     Dosage: 500 ML, 1X/DAY
     Dates: start: 20101031, end: 20101031
  28. PLASMION [Concomitant]
     Dosage: 250 ML, 2X/DAY
     Dates: start: 20101107, end: 20101107
  29. PREDNISOLONE [Concomitant]
     Indication: HAEMODYNAMIC INSTABILITY
     Dosage: UNK
     Route: 042
     Dates: start: 20101028, end: 20101106
  30. EPHEDRINE [Concomitant]
     Indication: HYPOTENSION
     Dosage: UNK
     Route: 042
     Dates: start: 20101031, end: 20101031
  31. ACLOTINE [Concomitant]
     Indication: ANTITHROMBIN III DEFICIENCY
     Dosage: 2500 IU, UNK
     Route: 042
     Dates: start: 20101104, end: 20101104
  32. ARGATROBAN [Suspect]
     Dosage: UNK
     Route: 042
     Dates: start: 20101112, end: 20101113
  33. CLAVENTIN [Concomitant]
     Indication: INFECTION
     Dosage: 3 G, 2X/DAY
     Route: 042
     Dates: start: 20101103, end: 20101111
  34. PLASMION [Concomitant]
     Dosage: 250 ML, 3X/DAY
     Dates: start: 20101108, end: 20101108
  35. ESOMEPRAZOLE [Concomitant]
     Indication: GASTRIC ULCER
     Dosage: UNK
     Route: 042
     Dates: start: 20101025, end: 20101108
  36. FUROSEMIDE [Concomitant]
     Dosage: 20 MG, 2X/DAY
     Dates: start: 20101030, end: 20101101

REACTIONS (3)
  - HAEMATEMESIS [None]
  - RECTAL HAEMORRHAGE [None]
  - MULTI-ORGAN FAILURE [None]
